FAERS Safety Report 10188942 (Version 1)
Quarter: 2014Q2

REPORT INFORMATION
  Report Type: Spontaneous
  Country: US (occurrence: US)
  Receive Date: 20140522
  Receipt Date: 20140522
  Transmission Date: 20141212
  Serious: No
  Sender: FDA-Public Use
  Company Number: US-BAYER-2014-075657

PATIENT
  Age: 18 Year
  Sex: Female
  Weight: 50 kg

DRUGS (2)
  1. ALEVE CAPLET [Suspect]
     Indication: HEADACHE
     Dosage: 1 DF
     Route: 048
     Dates: end: 20140520
  2. BACTRIM [Concomitant]

REACTIONS (2)
  - Rash generalised [Not Recovered/Not Resolved]
  - Expired product administered [None]
